FAERS Safety Report 5405322-3 (Version None)
Quarter: 2007Q3

REPORT INFORMATION
  Report Type: 
  Country: None (occurrence: None)
  Receive Date: 20070803
  Receipt Date: 20070723
  Transmission Date: 20080115
  Serious: Yes (Hospitalization)
  Sender: FDA-Public Use
  Company Number: FR-GILEAD-2007-0012772

PATIENT
  Sex: Male
  Weight: 45 kg

DRUGS (7)
  1. TRUVADA [Suspect]
     Indication: HIV INFECTION
     Route: 048
     Dates: start: 20070518, end: 20070716
  2. ROVALCYTE [Suspect]
     Indication: PROPHYLAXIS
     Route: 048
     Dates: start: 20070614, end: 20070712
  3. KALETRA [Suspect]
     Indication: HIV INFECTION
     Route: 048
     Dates: start: 20070518, end: 20070716
  4. FUZEON [Suspect]
     Indication: HIV INFECTION
     Route: 058
     Dates: start: 20070518, end: 20070716
  5. BACTRIM [Concomitant]
     Indication: PROPHYLAXIS
     Route: 048
     Dates: start: 20070418
  6. TRIFLUCAN [Concomitant]
     Route: 048
     Dates: start: 20070412
  7. AZADOSE [Concomitant]
     Dates: start: 20070418

REACTIONS (2)
  - ANAEMIA [None]
  - FEBRILE NEUTROPENIA [None]
